FAERS Safety Report 9657450 (Version 1)
Quarter: 2013Q4

REPORT INFORMATION
  Report Type: Spontaneous
  Country: JP (occurrence: JP)
  Receive Date: 20131030
  Receipt Date: 20131030
  Transmission Date: 20140711
  Serious: Yes (Other)
  Sender: FDA-Public Use
  Company Number: JP-PFIZER INC-2013309405

PATIENT
  Age: 52 Year
  Sex: Female

DRUGS (6)
  1. CELECOX [Suspect]
     Indication: MUSCULOSKELETAL PAIN
     Dosage: 100 MG, 2X/DAY
     Route: 048
     Dates: start: 20131003, end: 201310
  2. CELECOX [Suspect]
     Indication: PAIN IN EXTREMITY
     Dosage: 100 MG, 2X/DAY
     Route: 048
     Dates: start: 201310, end: 201310
  3. MYONAL [Concomitant]
     Indication: MUSCULOSKELETAL PAIN
     Dosage: 100 MG, 2X/DAY
     Dates: start: 20131003
  4. MYONAL [Concomitant]
     Indication: PAIN IN EXTREMITY
  5. FLOMOX [Concomitant]
     Dosage: UNK
     Route: 048
     Dates: start: 201310
  6. TALION [Concomitant]
     Indication: RASH
     Dosage: UNK

REACTIONS (4)
  - Rash generalised [Unknown]
  - Generalised erythema [Unknown]
  - Flushing [Unknown]
  - Swelling [Unknown]
